FAERS Safety Report 11775338 (Version 1)
Quarter: 2015Q4

REPORT INFORMATION
  Report Type: Spontaneous
  Country: US (occurrence: US)
  Receive Date: 20151125
  Receipt Date: 20151125
  Transmission Date: 20160304
  Serious: Yes (Hospitalization)
  Sender: FDA-Public Use
  Company Number: US-ACTELION-A-NJ2015-119677

PATIENT
  Age: 57 Year
  Sex: Male

DRUGS (2)
  1. WARFARIN [Concomitant]
     Active Substance: WARFARIN
  2. VELETRI [Suspect]
     Active Substance: EPOPROSTENOL
     Indication: PULMONARY ARTERIAL HYPERTENSION
     Dosage: 69 NG/KG, PER MIN
     Route: 042
     Dates: start: 20101101

REACTIONS (10)
  - Dyspnoea [Recovered/Resolved]
  - Pericardial effusion [Recovered/Resolved]
  - Drug dose omission [Unknown]
  - Pulmonary arterial hypertension [Recovered/Resolved]
  - Nausea [Unknown]
  - Device occlusion [Recovered/Resolved]
  - Device alarm issue [Unknown]
  - Thrombosis in device [Unknown]
  - Flushing [Unknown]
  - Right ventricular failure [Recovered/Resolved]

NARRATIVE: CASE EVENT DATE: 20150607
